FAERS Safety Report 9074271 (Version 1)
Quarter: 2013Q1

REPORT INFORMATION
  Report Type: Report from Study
  Country: US (occurrence: US)
  Receive Date: 20130128
  Receipt Date: 20130128
  Transmission Date: 20140127
  Serious: No
  Sender: FDA-Public Use
  Company Number: US-ABBOTT-12P-163-0909747-00

PATIENT
  Age: 64 Year
  Sex: Female

DRUGS (17)
  1. HUMIRA 40 MG/0.8 ML PEN [Suspect]
     Indication: CROHN^S DISEASE
     Dates: start: 201109
  2. JUICE PLUS BERRY [Suspect]
     Indication: PRODUCT USED FOR UNKNOWN INDICATION
  3. DERMA FILL [Suspect]
     Indication: PRODUCT USED FOR UNKNOWN INDICATION
     Dosage: ON FACE
  4. PRILOSEC [Concomitant]
     Indication: BARRETT^S OESOPHAGUS
  5. CELEXA [Concomitant]
     Indication: DEPRESSION
     Dosage: DAILY
  6. CELEXA [Concomitant]
     Indication: ANXIETY
  7. LISINOPRIL [Concomitant]
     Indication: HYPERTENSION
     Dosage: 20MG IN MORNING AND 10MG AT BEDTIME
  8. XANAX [Concomitant]
     Indication: ANXIETY
     Dosage: 2-3XS DAILY PRN (USUALLY TAKES 1 IN MORNING AND 1 IN EVENING)
  9. ASA [Concomitant]
     Indication: PRODUCT USED FOR UNKNOWN INDICATION
     Dosage: 81 MG DAILY
  10. VICODIN [Concomitant]
     Indication: PAIN
  11. VITAMIN B12 [Concomitant]
     Indication: PRODUCT USED FOR UNKNOWN INDICATION
  12. IRON [Concomitant]
     Indication: MINERAL SUPPLEMENTATION
     Dosage: 325 MG DAILY
  13. VIT D [Concomitant]
     Indication: VITAMIN SUPPLEMENTATION
     Dosage: DAILY
  14. MV [Concomitant]
     Indication: PRODUCT USED FOR UNKNOWN INDICATION
     Dosage: DAILY
  15. CALCIUM [Concomitant]
     Indication: PRODUCT USED FOR UNKNOWN INDICATION
     Dosage: 1000 MG DAILY
  16. PROZAC [Concomitant]
     Indication: DEPRESSION
  17. PROZAC [Concomitant]
     Indication: ANXIETY

REACTIONS (2)
  - Rash papular [Not Recovered/Not Resolved]
  - Skin burning sensation [Not Recovered/Not Resolved]
